FAERS Safety Report 12695219 (Version 2)
Quarter: 2017Q1

REPORT INFORMATION
  Report Type: Spontaneous
  Country: CA (occurrence: CA)
  Receive Date: 20160829
  Receipt Date: 20170306
  Transmission Date: 20170428
  Serious: Yes (Other)
  Sender: FDA-Public Use
  Company Number: CA-BAYER-2016-162640

PATIENT
  Sex: Male

DRUGS (1)
  1. KOGENATE FS [Suspect]
     Active Substance: ANTIHEMOPHILIC FACTOR, HUMAN RECOMBINANT
     Indication: FACTOR VIII DEFICIENCY
     Dosage: UNK

REACTIONS (4)
  - Osteorrhagia [None]
  - Haemorrhage [None]
  - Drug effect incomplete [None]
  - Product measured potency issue [None]

NARRATIVE: CASE EVENT DATE: 2016
